FAERS Safety Report 7096580-0 (Version None)
Quarter: 2010Q4

REPORT INFORMATION
  Report Type: 
  Country: None (occurrence: None)
  Receive Date: 20101111
  Receipt Date: 20101102
  Transmission Date: 20110411
  Serious: Yes (Hospitalization)
  Sender: FDA-Public Use
  Company Number: B0683566A

PATIENT
  Sex: Male
  Weight: 11 kg

DRUGS (1)
  1. LAMICTAL [Suspect]
     Indication: EPILEPSY
     Dates: start: 20100916, end: 20101012

REACTIONS (4)
  - C-REACTIVE PROTEIN INCREASED [None]
  - FEBRILE CONVULSION [None]
  - NEUTROPENIA [None]
  - RASH MACULAR [None]
